FAERS Safety Report 7444387-4 (Version None)
Quarter: 2011Q2

REPORT INFORMATION
  Report Type: 
  Country: None (occurrence: None)
  Receive Date: 20110427
  Receipt Date: 20110427
  Transmission Date: 20111010
  Serious: Yes (Other)
  Sender: FDA-Public Use
  Company Number: None

PATIENT
  Age: 45 Year
  Sex: Female
  Weight: 62.1428 kg

DRUGS (1)
  1. VALIUM [Suspect]
     Indication: ANXIETY
     Dosage: 10MG PO 1/2 1 QHS
     Route: 048

REACTIONS (2)
  - ABDOMINAL DISCOMFORT [None]
  - BLISTER [None]
